FAERS Safety Report 4423317-3 (Version None)
Quarter: 2004Q3

REPORT INFORMATION
  Report Type: 
  Country: None (occurrence: None)
  Receive Date: 20040811
  Receipt Date: 20040810
  Transmission Date: 20050211
  Serious: Yes (Hospitalization)
  Sender: FDA-Public Use
  Company Number: FR-GLAXOSMITHKLINE-B0341872A

PATIENT
  Age: 57 Year
  Sex: Male

DRUGS (3)
  1. TRIZIVIR [Suspect]
     Indication: HIV INFECTION
     Route: 048
     Dates: start: 20030405
  2. PEGASYS [Suspect]
     Indication: HEPATITIS C
     Dosage: 135MCG WEEKLY
     Route: 058
     Dates: start: 20030731
  3. GLUCOPHAGE [Concomitant]
     Route: 048
     Dates: end: 20040119

REACTIONS (3)
  - ASTHENIA [None]
  - HYPERGLYCAEMIA [None]
  - WEIGHT DECREASED [None]
